FAERS Safety Report 5237692-3 (Version None)
Quarter: 2007Q1

REPORT INFORMATION
  Report Type: 
  Country: None (occurrence: None)
  Receive Date: 20070214
  Receipt Date: 20070201
  Transmission Date: 20070707
  Serious: Yes (Hospitalization, Other)
  Sender: FDA-Public Use
  Company Number: PHHO2007JP02421

PATIENT
  Age: 67 Year
  Sex: Male

DRUGS (5)
  1. DIOVAN [Suspect]
     Indication: HYPERTENSION
     Dosage: 80 MG, QD
     Route: 048
     Dates: start: 20030506, end: 20060131
  2. NORVASC [Suspect]
     Indication: HYPERTENSION
     Dosage: 5 MG, UNK
     Route: 048
     Dates: start: 20030506, end: 20060131
  3. DIGOSIN [Concomitant]
     Indication: ATRIAL FIBRILLATION
  4. ASPIRIN [Concomitant]
     Indication: ATRIAL FIBRILLATION
  5. LASIX [Concomitant]
     Indication: HYPERTENSION

REACTIONS (2)
  - JAUNDICE [None]
  - LIVER DISORDER [None]
